FAERS Safety Report 4685159-3 (Version None)
Quarter: 2005Q2

REPORT INFORMATION
  Report Type: 
  Country: None (occurrence: None)
  Receive Date: 20050607
  Receipt Date: 20050323
  Transmission Date: 20051028
  Serious: Yes (Hospitalization)
  Sender: FDA-Public Use
  Company Number: 4893

PATIENT
  Age: 50 Year
  Sex: Male

DRUGS (2)
  1. NITROGLYCERIN [Suspect]
     Indication: ANGINA PECTORIS
     Dosage: ONE TABLET SUBLINGUALLY EVERY 3-5 MINUTES FOR A TOTAL OF 3 TABLETS IN 15 MINUTES
     Dates: start: 20050313
  2. MORPHINE [Concomitant]

REACTIONS (1)
  - UNEVALUABLE EVENT [None]
